FAERS Safety Report 5395473-4 (Version None)
Quarter: 2007Q3

REPORT INFORMATION
  Report Type: 
  Country: None (occurrence: None)
  Receive Date: 20070724
  Receipt Date: 20070717
  Transmission Date: 20080115
  Serious: Yes (Other)
  Sender: FDA-Public Use
  Company Number: B0479928A

PATIENT
  Sex: Male

DRUGS (2)
  1. AVODART [Suspect]
     Indication: DRUG USE FOR UNKNOWN INDICATION
     Dosage: .5MG UNKNOWN
     Route: 065
     Dates: start: 20070716
  2. TAMSULOSINE [Concomitant]
     Route: 048

REACTIONS (2)
  - PARKINSONISM [None]
  - SPEECH DISORDER [None]
